FAERS Safety Report 25998160 (Version 1)
Quarter: 2025Q4

REPORT INFORMATION
  Report Type: Spontaneous
  Country: EU (occurrence: EU)
  Receive Date: 20251105
  Receipt Date: 20251105
  Transmission Date: 20260117
  Serious: Yes (Hospitalization, Other)
  Sender: UNITED THERAPEUTICS
  Company Number: EU-UNITED THERAPEUTICS-UNT-2025-037029

PATIENT
  Age: 82 Year

DRUGS (4)
  1. REMODULIN [Suspect]
     Active Substance: TREPROSTINIL
     Indication: Pulmonary hypertension
     Dosage: 0.025 ?G/KG, CONTINUING
     Route: 041
  2. REMODULIN [Suspect]
     Active Substance: TREPROSTINIL
     Indication: Pulmonary hypertension
     Dosage: UNK, CONTINUING
     Route: 041
  3. RIOCIGUAT [Suspect]
     Active Substance: RIOCIGUAT
     Indication: Pulmonary hypertension
     Dosage: 2.5 MG, TID
  4. RIOCIGUAT [Suspect]
     Active Substance: RIOCIGUAT
     Indication: Pulmonary hypertension

REACTIONS (12)
  - Tricuspid valve incompetence [Recovering/Resolving]
  - Right ventricular failure [Recovering/Resolving]
  - Cardiac amyloidosis [Recovering/Resolving]
  - Cardiac failure [Recovering/Resolving]
  - Aortic stenosis [Recovered/Resolved]
  - Diastolic dysfunction [Recovering/Resolving]
  - N-terminal prohormone brain natriuretic peptide increased [Recovering/Resolving]
  - Atrial pressure increased [Recovering/Resolving]
  - Therapy non-responder [Unknown]
  - Pulmonary hypertension [Unknown]
  - Pulmonary hypertension [Unknown]
  - Off label use [Unknown]
